FAERS Safety Report 9354474 (Version 2)
Quarter: 2013Q2

REPORT INFORMATION
  Report Type: Spontaneous
  Country: FR (occurrence: FR)
  Receive Date: 20130618
  Receipt Date: 20130630
  Transmission Date: 20140414
  Serious: Yes (Other)
  Sender: FDA-Public Use
  Company Number: FR-TEVA-413066ISR

PATIENT
  Sex: Male

DRUGS (10)
  1. FUROSEMIDE TEVA 40MG [Suspect]
     Indication: CARDIAC DISORDER
     Dosage: 165 MILLIGRAM DAILY; 125MG IN THE MORNING AND 40MG AT NOON
     Route: 048
     Dates: end: 20130609
  2. FUROSEMIDE TEVA 40MG [Suspect]
     Dosage: 80 MILLIGRAM DAILY;
     Route: 048
     Dates: end: 20130609
  3. SEVIKAR 40/10 [Concomitant]
  4. ESIDREX [Concomitant]
  5. ZYLORIC [Concomitant]
  6. DIFFU K [Concomitant]
  7. NOVONORM [Concomitant]
  8. PREVISCAN [Concomitant]
  9. FLUOXETINE [Concomitant]
  10. LASILIX 500 [Concomitant]
     Dosage: .25 TABLET DAILY;

REACTIONS (4)
  - Weight increased [Not Recovered/Not Resolved]
  - Polyuria [Recovered/Resolved]
  - Somnolence [Not Recovered/Not Resolved]
  - Somnolence [Recovering/Resolving]
